FAERS Safety Report 5167494-8 (Version None)
Quarter: 2006Q4

REPORT INFORMATION
  Report Type: 
  Country: None (occurrence: None)
  Receive Date: 20061130
  Receipt Date: 20061115
  Transmission Date: 20070319
  Serious: Yes (Death)
  Sender: FDA-Public Use
  Company Number: GXKR2006JP07384

PATIENT
  Age: 65 Year
  Sex: Female
  Weight: 55 kg

DRUGS (7)
  1. CIPROFLOXACIN [Suspect]
     Indication: PROPHYLAXIS
  2. PANIPENEM (PANIPENEM) [Suspect]
     Indication: PYREXIA
  3. MINOCYCLINE HCL [Concomitant]
  4. CEFTAZIDIME [Concomitant]
  5. FOSFLUCONAZOLE [Concomitant]
  6. CLINDAMYCIN [Concomitant]
  7. CHEMOTHERAPEUTICS, OTHER [Concomitant]

REACTIONS (10)
  - BLOOD PRESSURE DECREASED [None]
  - CANDIDIASIS [None]
  - DEPRESSED LEVEL OF CONSCIOUSNESS [None]
  - DIARRHOEA [None]
  - ESCHERICHIA INFECTION [None]
  - FEBRILE NEUTROPENIA [None]
  - MULTIPLE-DRUG RESISTANCE [None]
  - PSEUDOMONAL SEPSIS [None]
  - RESPIRATORY ARREST [None]
  - STAPHYLOCOCCAL BACTERAEMIA [None]
